FAERS Safety Report 5893838-5 (Version None)
Quarter: 2008Q3

REPORT INFORMATION
  Report Type: 
  Country: None (occurrence: None)
  Receive Date: 20080923
  Receipt Date: 20070406
  Transmission Date: 20090109
  Serious: No
  Sender: FDA-Public Use
  Company Number: US-ASTRAZENECA-2007UW25293

PATIENT
  Age: 20867 Day
  Sex: Male
  Weight: 94.5 kg

DRUGS (3)
  1. SEROQUEL [Suspect]
     Indication: DEPRESSION
     Dosage: 25 MG - 200 MG
     Route: 048
     Dates: start: 20021107, end: 20060201
  2. RISPERDAL [Concomitant]
     Indication: DEPRESSION
     Route: 048
     Dates: start: 20041101, end: 20051207
  3. THORAZINE [Concomitant]
     Dates: start: 19950101, end: 19990101

REACTIONS (4)
  - BURNS SECOND DEGREE [None]
  - LUNG DISORDER [None]
  - PARAESTHESIA [None]
  - TYPE 2 DIABETES MELLITUS [None]
